FAERS Safety Report 10486070 (Version 1)
Quarter: 2014Q3

REPORT INFORMATION
  Report Type: Spontaneous
  Country: US (occurrence: None)
  Receive Date: 20140929
  Receipt Date: 20140929
  Transmission Date: 20150326
  Serious: No
  Sender: FDA-Public Use
  Company Number: 14AE043

PATIENT
  Age: 69 Year
  Sex: Female

DRUGS (1)
  1. DOXYLAMINE SUCCINATE 25 MG 441 [Suspect]
     Active Substance: DOXYLAMINE SUCCINATE
     Indication: INSOMNIA
     Dosage: 1 BY MOUTH/ONCE
     Dates: start: 20140918

REACTIONS (1)
  - Somnolence [None]

NARRATIVE: CASE EVENT DATE: 20140918
